FAERS Safety Report 16544477 (Version 1)
Quarter: 2019Q3

REPORT INFORMATION
  Report Type: Spontaneous
  Country: BR (occurrence: BR)
  Receive Date: 20190709
  Receipt Date: 20190709
  Transmission Date: 20191004
  Serious: Yes (Disabling, Other)
  Sender: FDA-Public Use
  Company Number: PHHY2019BR156877

PATIENT
  Age: 59 Year
  Sex: Female

DRUGS (3)
  1. DECADRON [Suspect]
     Active Substance: DEXAMETHASONE
     Indication: PRODUCT USED FOR UNKNOWN INDICATION
     Dosage: UNK
     Route: 065
  2. VOLTAREN [Suspect]
     Active Substance: DICLOFENAC SODIUM
     Indication: PRODUCT USED FOR UNKNOWN INDICATION
     Dosage: UNK
     Route: 065
  3. ENBREL [Suspect]
     Active Substance: ETANERCEPT
     Indication: PRODUCT USED FOR UNKNOWN INDICATION
     Dosage: UNK
     Route: 065
     Dates: end: 201903

REACTIONS (19)
  - Gait disturbance [Unknown]
  - Muscular weakness [Unknown]
  - Bone pain [Not Recovered/Not Resolved]
  - Pain [Not Recovered/Not Resolved]
  - Fatigue [Unknown]
  - Joint instability [Unknown]
  - Dysstasia [Unknown]
  - Drug hypersensitivity [Unknown]
  - Atrophy [Unknown]
  - Swelling [Unknown]
  - Dyspnoea [Unknown]
  - Intervertebral disc protrusion [Unknown]
  - Functional gastrointestinal disorder [Unknown]
  - Inflammation [Unknown]
  - Bone marrow disorder [Unknown]
  - Spinal disorder [Unknown]
  - Bone atrophy [Unknown]
  - Nervousness [Unknown]
  - Erythema [Unknown]
